FAERS Safety Report 9271143 (Version 1)
Quarter: 2013Q2

REPORT INFORMATION
  Report Type: Spontaneous
  Country: DE (occurrence: DE)
  Receive Date: 20130506
  Receipt Date: 20130506
  Transmission Date: 20140414
  Serious: Yes (Hospitalization)
  Sender: FDA-Public Use
  Company Number: PHHY2013DE043686

PATIENT
  Sex: Female

DRUGS (1)
  1. AFINITOR [Suspect]
     Dosage: 10 MG, DAILY
     Route: 048
     Dates: start: 20130301, end: 20130413

REACTIONS (5)
  - Diverticular perforation [Unknown]
  - Sepsis [Unknown]
  - Mucosal inflammation [Unknown]
  - Cough [Unknown]
  - Diarrhoea [Unknown]
